FAERS Safety Report 7617005-X (Version None)
Quarter: 2011Q3

REPORT INFORMATION
  Report Type: 
  Country: None (occurrence: None)
  Receive Date: 20110718
  Receipt Date: 20100219
  Transmission Date: 20111222
  Serious: No
  Sender: FDA-Public Use
  Company Number: 2010BI005953

PATIENT
  Age: 30 Year
  Sex: Female

DRUGS (2)
  1. TYSABRI [Suspect]
     Route: 042
     Dates: start: 20070328
  2. TYSABRI [Suspect]
     Indication: MULTIPLE SCLEROSIS
     Route: 042
     Dates: start: 20050224

REACTIONS (3)
  - PERONEAL NERVE PALSY [None]
  - HEADACHE [None]
  - BURNING SENSATION [None]
